FAERS Safety Report 16372981 (Version 2)
Quarter: 2019Q2

REPORT INFORMATION
  Report Type: Spontaneous
  Country: FR (occurrence: FR)
  Receive Date: 20190530
  Receipt Date: 20190606
  Transmission Date: 20190711
  Serious: Yes (Other)
  Sender: FDA-Public Use
  Company Number: FR-TEVA-2019-FR-1056578

PATIENT
  Age: 57 Year
  Sex: Female

DRUGS (4)
  1. VANCOMYCINE [Suspect]
     Active Substance: VANCOMYCIN
     Indication: PROPHYLAXIS
     Dosage: UNKNOWN
     Route: 042
     Dates: start: 20180912, end: 20180912
  2. BUPIVACAINE (CHLORHYDRATE DE) [Suspect]
     Active Substance: BUPIVACAINE HYDROCHLORIDE
     Indication: SURGERY
     Dosage: UNKNOWN
     Route: 008
     Dates: start: 20180912, end: 20180912
  3. DEXAMETHASONE. [Suspect]
     Active Substance: DEXAMETHASONE
     Indication: SURGERY
     Dosage: UNKNOWN
     Route: 008
     Dates: start: 20180912, end: 20180912
  4. SUFENTANIL [Suspect]
     Active Substance: SUFENTANIL
     Indication: SURGERY
     Dosage: UNKNOWN
     Route: 008
     Dates: start: 20180912, end: 20180912

REACTIONS (1)
  - Anaphylactoid shock [Recovered/Resolved]

NARRATIVE: CASE EVENT DATE: 20180912
